FAERS Safety Report 4669892-5 (Version None)
Quarter: 2005Q2

REPORT INFORMATION
  Report Type: 
  Country: None (occurrence: None)
  Receive Date: 20050523
  Receipt Date: 20050511
  Transmission Date: 20051028
  Serious: Yes (Death)
  Sender: FDA-Public Use
  Company Number: USA-2005-0019643

PATIENT
  Sex: Female

DRUGS (1)
  1. PALLADONE [Suspect]

REACTIONS (1)
  - NO ADVERSE EFFECT [None]
